FAERS Safety Report 7729395-8 (Version None)
Quarter: 2011Q3

REPORT INFORMATION
  Report Type: 
  Country: None (occurrence: None)
  Receive Date: 20110906
  Receipt Date: 20110824
  Transmission Date: 20111222
  Serious: Yes (Hospitalization)
  Sender: FDA-Public Use
  Company Number: US-UCBSA-040047

PATIENT
  Sex: Male
  Weight: 77.11 kg

DRUGS (2)
  1. AZASAN [Concomitant]
     Indication: IMMUNOSUPPRESSION
     Dosage: BY MOUTH
     Dates: start: 20050101
  2. CIMZIA [Suspect]
     Indication: CROHN'S DISEASE
     Route: 058
     Dates: start: 20090101

REACTIONS (2)
  - NEPHROLITHIASIS [None]
  - FATIGUE [None]
